FAERS Safety Report 7607751-6 (Version None)
Quarter: 2011Q3

REPORT INFORMATION
  Report Type: 
  Country: None (occurrence: None)
  Receive Date: 20110713
  Receipt Date: 20110613
  Transmission Date: 20111222
  Serious: Yes (Hospitalization, Other)
  Sender: FDA-Public Use
  Company Number: PHHY2011CA53106

PATIENT
  Sex: Female
  Weight: 108 kg

DRUGS (30)
  1. DIVALPROEX SODIUM [Concomitant]
     Dosage: 500 MG, TID
     Route: 048
     Dates: start: 20110520, end: 20110525
  2. LEVOTHYROXINE [Concomitant]
     Dosage: 0.05 MG, DAILY
     Route: 048
     Dates: start: 20110520, end: 20110624
  3. CEFAZOLIN [Concomitant]
     Dosage: 1 G/10 ML, Q8H
     Dates: start: 20110519, end: 20110523
  4. DOCUSATE SODIUM [Concomitant]
     Dosage: 100 MG, BID
     Dates: start: 20110519, end: 20110623
  5. CLOZAPINE [Suspect]
     Dosage: 300 MG IN MORNING AND 500 MG IN EVENING
     Dates: start: 20050121
  6. CLOZAPINE [Suspect]
     Dosage: 100 MG IN MORNING AND 500 MG IN EVENING
  7. MORPHINE [Concomitant]
     Dosage: 10 MG/ML, 5-10 MG Q2H PRN
     Route: 042
     Dates: start: 20110519, end: 20110623
  8. CLOMIPRAMINE HYDROCHLORIDE [Concomitant]
     Dosage: 50 MG, DAILY
     Route: 048
     Dates: start: 20110520, end: 20110527
  9. CEPHALEXIN [Concomitant]
     Dosage: 500 MG, Q6H
     Route: 048
     Dates: start: 20110605, end: 20110612
  10. CLOZAPINE [Suspect]
     Dosage: 300 MG (3X100 MG), DAILY
     Route: 048
     Dates: start: 20110520, end: 20110601
  11. RANITIDINE [Concomitant]
     Dosage: 150 MG, BID
     Route: 048
     Dates: start: 20110527, end: 20110528
  12. DIVALPROEX SODIUM [Concomitant]
     Dosage: 500 MG, UNK
     Dates: start: 20110527
  13. ZIPRASIDONE HYDROCHLORIDE [Concomitant]
     Dosage: 60 MG, DAILY
     Route: 048
     Dates: start: 20110521, end: 20110625
  14. PANTOPRAZOLE [Concomitant]
     Dosage: 40 MG, BID
     Dates: start: 20110520, end: 20110624
  15. CLOMIPRAMINE HYDROCHLORIDE [Concomitant]
     Dosage: 50 MG, BID AT BEDTIME
     Route: 048
     Dates: start: 20110520, end: 20110624
  16. PREGABALIN [Concomitant]
     Dosage: 75 MG, UNK
  17. CLOZAPINE [Suspect]
     Dates: start: 20110527, end: 20110528
  18. CLOZAPINE [Suspect]
     Dosage: 500 MG, AT BEDTIME
     Route: 048
     Dates: start: 20110527
  19. CLOZAPINE [Suspect]
     Dosage: UNK
     Dates: start: 20110528
  20. CLOZAPINE [Suspect]
     Dosage: 550 MG, 5.5X100 MG AT BEDTIME
     Route: 048
     Dates: start: 20110520, end: 20110528
  21. DIMENHYDRINATE [Concomitant]
     Dosage: 50 MG/ML- 25-50 MG Q4H PRN
     Route: 042
     Dates: start: 20110519, end: 20110601
  22. ACETAMINOPHEN W/ CODEINE [Concomitant]
     Dosage: 30 MG, 1-2 TABS Q4H PRN
     Route: 048
     Dates: start: 20110519, end: 20110601
  23. DIVALPROEX SODIUM [Concomitant]
     Dosage: 250 MG, QD
     Route: 048
     Dates: start: 20110527
  24. GEMFIBROZIL [Concomitant]
     Dosage: 600 MG, BID WITH MEALS
     Route: 048
     Dates: start: 20110520, end: 20110624
  25. FUROSEMIDE [Concomitant]
     Dosage: 2 ML, QD (10 MG/ML)
     Route: 042
     Dates: start: 20110520, end: 20110520
  26. CIPROFLOXACIN [Concomitant]
     Dosage: 500 MG, BID
     Route: 048
     Dates: start: 20110604, end: 20110605
  27. CLOZAPINE [Suspect]
     Dosage: 200 MG, DAILY
     Route: 048
     Dates: start: 20110602, end: 20110603
  28. CLOZAPINE [Suspect]
     Dosage: 100 MG, DAILY
     Route: 048
     Dates: start: 20110604
  29. ENOXAPARIN [Concomitant]
     Dosage: 30 MG/0.3 ML SUB-Q BID AT 1000 AND 2200
     Dates: start: 20110519, end: 20110623
  30. RANITIDINE [Concomitant]
     Dosage: 2 ML/50 MG
     Dates: start: 20110519, end: 20110527

REACTIONS (1)
  - LUMBAR SPINAL STENOSIS [None]
